FAERS Safety Report 6858356-6 (Version None)
Quarter: 2010Q3

REPORT INFORMATION
  Report Type: 
  Country: None (occurrence: None)
  Receive Date: 20100719
  Receipt Date: 20080331
  Transmission Date: 20110219
  Serious: No
  Sender: FDA-Public Use
  Company Number: US-PFIZER INC-2008011936

PATIENT
  Sex: Female
  Weight: 71.2 kg

DRUGS (1)
  1. CHANTIX [Suspect]
     Indication: SMOKING CESSATION THERAPY
     Route: 048
     Dates: start: 20071222, end: 20080322

REACTIONS (3)
  - DYSGEUSIA [None]
  - FATIGUE [None]
  - INSOMNIA [None]
